FAERS Safety Report 8287732-2 (Version None)
Quarter: 2012Q2

REPORT INFORMATION
  Report Type: 
  Country: None (occurrence: None)
  Receive Date: 20120416
  Receipt Date: 20120410
  Transmission Date: 20120825
  Serious: Yes (Other)
  Sender: FDA-Public Use
  Company Number: GB-BAYER-2012-017181

PATIENT
  Age: 26 Year
  Sex: Female
  Weight: 59.864 kg

DRUGS (1)
  1. YASMIN [Suspect]
     Indication: CONTRACEPTION
     Dosage: UNK
     Route: 048

REACTIONS (4)
  - NAUSEA [None]
  - MALAISE [None]
  - BALANCE DISORDER [None]
  - CHEST DISCOMFORT [None]
